FAERS Safety Report 15059124 (Version 3)
Quarter: 2018Q3

REPORT INFORMATION
  Report Type: Spontaneous
  Country: DE (occurrence: DE)
  Receive Date: 20180625
  Receipt Date: 20180710
  Transmission Date: 20181010
  Serious: Yes (Hospitalization)
  Sender: FDA-Public Use
  Company Number: PHHY2017DE203934

PATIENT
  Sex: Male
  Weight: 96 kg

DRUGS (19)
  1. DEXAMETHASONE. [Suspect]
     Active Substance: DEXAMETHASONE
     Dosage: 8 MG, QW
     Route: 065
     Dates: start: 20180311, end: 20180401
  2. ERYTHROPOETIN [Concomitant]
     Active Substance: ERYTHROPOIETIN
     Dosage: 1000 IU
     Route: 058
     Dates: start: 20171128
  3. ALLOPURINOL. [Concomitant]
     Active Substance: ALLOPURINOL
     Indication: BLOOD URIC ACID
     Dosage: 200 MG, QD
     Route: 048
  4. DEKRISTOL [Concomitant]
     Active Substance: CHOLECALCIFEROL
     Indication: PROPHYLAXIS
     Dosage: 2000 OT, UNK
     Route: 048
  5. MOVICOL [Concomitant]
     Active Substance: POLYETHYLENE GLYCOL 3350\POTASSIUM CHLORIDE\SODIUM BICARBONATE\SODIUM CHLORIDE
     Indication: PROPHYLAXIS
     Dosage: 27.62 G, UNK
     Route: 048
     Dates: start: 20170426
  6. REVLIMID [Suspect]
     Active Substance: LENALIDOMIDE
     Dosage: 25 MG, UNK
     Route: 048
  7. OMEDOC [Concomitant]
     Indication: PROPHYLAXIS
     Dosage: 20 MG, QD
     Route: 048
     Dates: start: 20170404
  8. OXYCODON [Concomitant]
     Active Substance: OXYCODONE
     Indication: BONE PAIN
     Dosage: 20 MG, QD
     Route: 048
     Dates: start: 20170426
  9. COTRIM [Concomitant]
     Active Substance: SULFAMETHOXAZOLE\TRIMETHOPRIM
     Indication: PROPHYLAXIS
     Dosage: 2880 MG (960 MG), QW
     Route: 048
     Dates: start: 20171023
  10. ASA [Concomitant]
     Active Substance: ASPIRIN
     Indication: PROPHYLAXIS
     Dosage: 100 MG, UNK
     Route: 048
  11. DEXAMETHASONE. [Suspect]
     Active Substance: DEXAMETHASONE
     Indication: PLASMA CELL MYELOMA
     Dosage: 8 MG, QW (1.1429 MILLIGRAM)
     Route: 065
     Dates: start: 20170706, end: 20171006
  12. COTRIM [Concomitant]
     Active Substance: SULFAMETHOXAZOLE\TRIMETHOPRIM
     Dosage: 960 MG
     Route: 048
     Dates: start: 20171023
  13. ASPIRIN. [Concomitant]
     Active Substance: ASPIRIN
     Indication: PROPHYLAXIS
     Dosage: 100 MG, QD
     Route: 048
  14. PAMIDRONATE [Concomitant]
     Active Substance: PAMIDRONATE DISODIUM
     Indication: PROPHYLAXIS
     Dosage: 60 MG, QMO
     Route: 041
     Dates: start: 20170518
  15. DEXAMETHASONE. [Suspect]
     Active Substance: DEXAMETHASONE
     Dosage: 8 MG, QW (1.1429 MILLIGRAM )
     Route: 065
     Dates: start: 20171217, end: 20180304
  16. REVLIMID [Suspect]
     Active Substance: LENALIDOMIDE
     Indication: PLASMA CELL MYELOMA
     Dosage: 15 MG, UNK
     Route: 048
  17. VALSARTAN. [Concomitant]
     Active Substance: VALSARTAN
     Indication: HYPERTENSION
     Dosage: 160 MG, QD
     Route: 048
  18. ERYTHROPOETIN [Concomitant]
     Active Substance: ERYTHROPOIETIN
     Indication: ERYTHROPENIA
     Dosage: 1000 IU, QW
     Route: 058
     Dates: start: 20171128
  19. NOVAMINSULFON [Concomitant]
     Active Substance: METAMIZOLE
     Indication: BONE PAIN
     Dosage: 2000 MG, QD
     Route: 048

REACTIONS (7)
  - Visual impairment [Recovered/Resolved]
  - Anaemia [Recovered/Resolved]
  - Bone pain [Recovered/Resolved]
  - Organising pneumonia [Recovered/Resolved]
  - Leukopenia [Recovered/Resolved]
  - Fatigue [Recovered/Resolved]
  - Vertigo [Recovered/Resolved]

NARRATIVE: CASE EVENT DATE: 20171212
